FAERS Safety Report 13934595 (Version 1)
Quarter: 2017Q3

REPORT INFORMATION
  Report Type: Spontaneous
  Country: US (occurrence: US)
  Receive Date: 20170905
  Receipt Date: 20170905
  Transmission Date: 20171127
  Serious: Yes (Death, Other)
  Sender: FDA-Public Use
  Company Number: US-HETERO CORPORATE-HET2017US00125

PATIENT
  Age: 18 Year
  Sex: Female

DRUGS (1)
  1. ACYCLOVIR. [Suspect]
     Active Substance: ACYCLOVIR
     Indication: HERPES SIMPLEX
     Dosage: UNK
     Route: 065

REACTIONS (10)
  - Septic shock [None]
  - Multi-organ disorder [None]
  - Candida test positive [None]
  - Drug resistance [Fatal]
  - Caesarean section [None]
  - Hepatic steatosis [None]
  - Disseminated intravascular coagulation [None]
  - Amniotic cavity infection [None]
  - Hepatic failure [Fatal]
  - Encephalopathy [None]
